FAERS Safety Report 24673657 (Version 3)
Quarter: 2025Q1

REPORT INFORMATION
  Report Type: Spontaneous
  Country: US (occurrence: US)
  Receive Date: 20241128
  Receipt Date: 20250326
  Transmission Date: 20250408
  Serious: Yes (Other)
  Sender: CSL BEHRING
  Company Number: US-BEH-2024186380

PATIENT
  Age: 36 Year
  Sex: Female

DRUGS (7)
  1. HUMATE-P [Suspect]
     Active Substance: HUMAN COAGULATION FACTOR VIII/VON WILLEBRAND FACTOR COMPLEX
     Indication: Von Willebrand^s disease
     Route: 042
     Dates: start: 202409
  2. HUMATE-P [Suspect]
     Active Substance: HUMAN COAGULATION FACTOR VIII/VON WILLEBRAND FACTOR COMPLEX
     Route: 042
     Dates: start: 202409
  3. HUMATE-P [Suspect]
     Active Substance: HUMAN COAGULATION FACTOR VIII/VON WILLEBRAND FACTOR COMPLEX
     Route: 042
     Dates: start: 202409
  4. AMINOCAPROIC ACID [Concomitant]
     Active Substance: AMINOCAPROIC ACID
  5. NOVOSEVEN [Concomitant]
     Active Substance: COAGULATION FACTOR VIIA RECOMBINANT HUMAN
     Route: 065
  6. HEPARIN [Concomitant]
     Active Substance: HEPARIN SODIUM
  7. SALINE [Concomitant]
     Active Substance: SODIUM CHLORIDE

REACTIONS (4)
  - Haemorrhage [Recovered/Resolved]
  - Catheter site haemorrhage [Not Recovered/Not Resolved]
  - Heavy menstrual bleeding [Not Recovered/Not Resolved]
  - Catheter site haemorrhage [Unknown]

NARRATIVE: CASE EVENT DATE: 20240101
